FAERS Safety Report 5711957-0 (Version None)
Quarter: 2008Q2

REPORT INFORMATION
  Report Type: 
  Country: None (occurrence: None)
  Receive Date: 20080421
  Receipt Date: 20080410
  Transmission Date: 20081010
  Serious: Yes (Other)
  Sender: FDA-Public Use
  Company Number: DE-GILEAD-2008-0016070

PATIENT
  Sex: Male

DRUGS (1)
  1. TRUVADA [Suspect]

REACTIONS (1)
  - MYELODYSPLASTIC SYNDROME [None]
